FAERS Safety Report 25263520 (Version 1)
Quarter: 2025Q2

REPORT INFORMATION
  Report Type: Spontaneous
  Country: US (occurrence: US)
  Receive Date: 20250502
  Receipt Date: 20250502
  Transmission Date: 20250717
  Serious: No
  Sender: SPECGX
  Company Number: US-SPECGX-T202402452

PATIENT

DRUGS (1)
  1. METHADONE [Suspect]
     Active Substance: METHADONE HYDROCHLORIDE
     Indication: Restless legs syndrome
     Dosage: 5 MILLIGRAM, BID
     Route: 065
     Dates: start: 202411

REACTIONS (3)
  - Product dispensing error [Unknown]
  - Expired product administered [Unknown]
  - Product use in unapproved indication [Unknown]

NARRATIVE: CASE EVENT DATE: 20241101
